FAERS Safety Report 9835871 (Version 1)
Quarter: 2014Q1

REPORT INFORMATION
  Report Type: Spontaneous
  Country: US (occurrence: US)
  Receive Date: 20140122
  Receipt Date: 20140122
  Transmission Date: 20141002
  Serious: Yes (Other)
  Sender: FDA-Public Use
  Company Number: US-B.I. PHARMACEUTICALS,INC./RIDGEFIELD-2014-BI-02220BP

PATIENT
  Sex: Female

DRUGS (1)
  1. DULCOLAX STOOL SOFTENER [Suspect]
     Indication: CONSTIPATION
     Dosage: \
     Route: 048

REACTIONS (5)
  - Amyotrophic lateral sclerosis [Unknown]
  - Gastrointestinal tube insertion [Unknown]
  - Dysphagia [Unknown]
  - Speech disorder [Unknown]
  - Off label use [Unknown]
